FAERS Safety Report 13517452 (Version 1)
Quarter: 2017Q2

REPORT INFORMATION
  Report Type: Spontaneous
  Country: US (occurrence: US)
  Receive Date: 20170505
  Receipt Date: 20170505
  Transmission Date: 20170830
  Serious: Yes (Hospitalization)
  Sender: FDA-Public Use
  Company Number: None

PATIENT
  Age: 74 Year
  Sex: Female
  Weight: 94.3 kg

DRUGS (14)
  1. COREG [Suspect]
     Active Substance: CARVEDILOL
     Indication: HYPERTENSION
     Dosage: DATES OF USE - RECENT
     Route: 048
  2. BIDIL [Concomitant]
     Active Substance: HYDRALAZINE HYDROCHLORIDE\ISOSORBIDE DINITRATE
  3. PACERONE [Concomitant]
     Active Substance: AMIODARONE HYDROCHLORIDE
  4. BUMEX [Suspect]
     Active Substance: BUMETANIDE
     Indication: HYPERTENSION
     Dosage: DATES OF USE - RECENT
     Route: 048
  5. ZETIA [Concomitant]
     Active Substance: EZETIMIBE
  6. LEVOTHROID [Concomitant]
     Active Substance: LEVOTHYROXINE SODIUM
  7. LISINOPRIL. [Suspect]
     Active Substance: LISINOPRIL
     Route: 048
  8. VITAMIN D3 [Concomitant]
     Active Substance: CHOLECALCIFEROL
  9. PLAVIX [Concomitant]
     Active Substance: CLOPIDOGREL BISULFATE
  10. ZYLOPRIM [Concomitant]
     Active Substance: ALLOPURINOL
  11. ECOTRIN [Concomitant]
     Active Substance: ASPIRIN
  12. PEPCID [Concomitant]
     Active Substance: FAMOTIDINE
  13. NPH INSULIN [Concomitant]
     Active Substance: INSULIN BEEF
  14. LIDODERM [Concomitant]
     Active Substance: LIDOCAINE

REACTIONS (3)
  - Acute kidney injury [None]
  - Bradycardia [None]
  - Hyperkalaemia [None]

NARRATIVE: CASE EVENT DATE: 20161212
